FAERS Safety Report 6673865-0 (Version None)
Quarter: 2010Q2

REPORT INFORMATION
  Report Type: 
  Country: None (occurrence: None)
  Receive Date: 20100409
  Receipt Date: 20100330
  Transmission Date: 20101027
  Serious: Yes (Hospitalization)
  Sender: FDA-Public Use
  Company Number: US-BIOGENIDEC-2009BI016123

PATIENT
  Age: 43 Year
  Sex: Female

DRUGS (3)
  1. TYSABRI [Suspect]
     Indication: MULTIPLE SCLEROSIS
     Route: 042
     Dates: start: 20090401
  2. DILANTIN [Concomitant]
     Indication: GRAND MAL CONVULSION
  3. GINKO BILOBA [Concomitant]
     Indication: CONVULSION

REACTIONS (9)
  - ANTICONVULSANT DRUG LEVEL BELOW THERAPEUTIC [None]
  - CANDIDIASIS [None]
  - ESCHERICHIA URINARY TRACT INFECTION [None]
  - HALLUCINATION [None]
  - KIDNEY INFECTION [None]
  - MULTIPLE SCLEROSIS RELAPSE [None]
  - OVERDOSE [None]
  - PYREXIA [None]
  - SYSTEMIC MYCOSIS [None]
